FAERS Safety Report 24168844 (Version 1)
Quarter: 2024Q3

REPORT INFORMATION
  Report Type: Report from Study
  Country: US (occurrence: None)
  Receive Date: 20240802
  Receipt Date: 20240802
  Transmission Date: 20241016
  Serious: Yes (Other)
  Sender: ASTRAZENECA
  Company Number: 2024A171690

PATIENT
  Sex: Female

DRUGS (1)
  1. TEZSPIRE [Suspect]
     Active Substance: TEZEPELUMAB-EKKO

REACTIONS (11)
  - Dyspnoea [Unknown]
  - Asthma [Unknown]
  - Gastrooesophageal reflux disease [Unknown]
  - Percussion test abnormal [Unknown]
  - Cardiac flutter [Unknown]
  - Hallucination [Unknown]
  - Hypothyroidism [Unknown]
  - Upper-airway cough syndrome [Unknown]
  - Cough [Unknown]
  - Pneumonia pseudomonal [Unknown]
  - Fibromyalgia [Unknown]
